FAERS Safety Report 7583351-1 (Version None)
Quarter: 2011Q2

REPORT INFORMATION
  Report Type: 
  Country: None (occurrence: None)
  Receive Date: 20110623
  Receipt Date: 20110616
  Transmission Date: 20111010
  Serious: Yes (Life-Threatening, Hospitalization, Other)
  Sender: FDA-Public Use
  Company Number: 2010SP046931

PATIENT
  Age: 27 Year
  Sex: Female
  Weight: 63.5036 kg

DRUGS (1)
  1. NUVARING [Suspect]
     Indication: CONTRACEPTION
     Dates: start: 20080101, end: 20080901

REACTIONS (17)
  - PALPITATIONS [None]
  - THROMBOSIS [None]
  - HYPOAESTHESIA [None]
  - BREAST PAIN [None]
  - MAY-THURNER SYNDROME [None]
  - FUNGAL INFECTION [None]
  - CARDIAC HYPERTROPHY [None]
  - ILIAC VEIN OCCLUSION [None]
  - MOOD SWINGS [None]
  - BREAST HAEMATOMA [None]
  - DEEP VEIN THROMBOSIS [None]
  - WEIGHT INCREASED [None]
  - URINARY TRACT INFECTION [None]
  - CHEST PAIN [None]
  - DEPRESSION [None]
  - ANGER [None]
  - MIGRAINE [None]
